FAERS Safety Report 24382779 (Version 1)
Quarter: 2024Q3

REPORT INFORMATION
  Report Type: Spontaneous
  Country: US (occurrence: None)
  Receive Date: 20240930
  Receipt Date: 20240930
  Transmission Date: 20241017
  Serious: Yes (Hospitalization)
  Sender: Public
  Company Number: None

PATIENT
  Sex: Male

DRUGS (11)
  1. CYCLOSPORINE MODIFIED [Suspect]
     Active Substance: CYCLOSPORINE
     Indication: Aplastic anaemia
     Route: 048
     Dates: start: 20240402
  2. ACYCLOVIR SUS 20015ML [Concomitant]
  3. AMLODIPINE [Concomitant]
     Active Substance: AMLODIPINE BESYLATE
  4. CYCLOSPORINE [Concomitant]
     Active Substance: CYCLOSPORINE
  5. FLUCONAZOLE SUS 40MG/ML [Concomitant]
  6. KINRIX INJ [Concomitant]
  7. LEVOFLOXACIN TAB 250 MG [Concomitant]
  8. MAGNESIUM CAP 300MG [Concomitant]
  9. PEPCID AC TAB 20MG [Concomitant]
  10. PREDNISONE TAB 5MG [Concomitant]
  11. TRIAMCINOLONE ACETONIDE [Concomitant]

REACTIONS (2)
  - Skin exfoliation [None]
  - Malaise [None]
